FAERS Safety Report 19612428 (Version 1)
Quarter: 2021Q3

REPORT INFORMATION
  Report Type: Report from Study
  Country: None (occurrence: US)
  Receive Date: 20210726
  Receipt Date: 20210726
  Transmission Date: 20211014
  Serious: Yes (Other)
  Sender: FDA-Public Use
  Company Number: US-ABBVIE-21K-163-3949005-00

PATIENT
  Age: 52 Year
  Sex: Female

DRUGS (1)
  1. HUMIRA [Suspect]
     Active Substance: ADALIMUMAB
     Indication: PSORIATIC ARTHROPATHY
     Route: 058
     Dates: start: 202103

REACTIONS (28)
  - Back pain [Unknown]
  - Insomnia [Unknown]
  - Blood test abnormal [Unknown]
  - Fatigue [Unknown]
  - Feeling abnormal [Not Recovered/Not Resolved]
  - Pollakiuria [Unknown]
  - Joint swelling [Not Recovered/Not Resolved]
  - Joint stiffness [Not Recovered/Not Resolved]
  - Drug ineffective [Unknown]
  - Adhesion [Unknown]
  - Pain [Not Recovered/Not Resolved]
  - General physical health deterioration [Not Recovered/Not Resolved]
  - Migraine [Not Recovered/Not Resolved]
  - Asthenia [Unknown]
  - Arthralgia [Not Recovered/Not Resolved]
  - Muscle spasms [Not Recovered/Not Resolved]
  - Haemoglobin abnormal [Unknown]
  - Umbilical hernia [Unknown]
  - Abdominal pain [Unknown]
  - Fungal infection [Recovered/Resolved]
  - Gait disturbance [Not Recovered/Not Resolved]
  - Eye pain [Unknown]
  - Suicidal ideation [Unknown]
  - Hyperhidrosis [Unknown]
  - Chills [Unknown]
  - Pelvic pain [Unknown]
  - Weight increased [Unknown]
  - Eye irritation [Unknown]

NARRATIVE: CASE EVENT DATE: 2021
